FAERS Safety Report 6975249-4 (Version None)
Quarter: 2010Q3

REPORT INFORMATION
  Report Type: 
  Country: None (occurrence: None)
  Receive Date: 20100910
  Receipt Date: 20090223
  Transmission Date: 20110219
  Serious: No
  Sender: FDA-Public Use
  Company Number: US-WYE-H08325609

PATIENT
  Sex: Female
  Weight: 69.01 kg

DRUGS (1)
  1. PRISTIQ [Suspect]
     Indication: ANXIETY
     Route: 048
     Dates: start: 20080501, end: 20090101

REACTIONS (5)
  - ASTHENIA [None]
  - CONSTIPATION [None]
  - FATIGUE [None]
  - NERVOUSNESS [None]
  - WEIGHT INCREASED [None]
